FAERS Safety Report 20916929 (Version 1)
Quarter: 2022Q2

REPORT INFORMATION
  Report Type: Spontaneous
  Country: US (occurrence: US)
  Receive Date: 20220606
  Receipt Date: 20220606
  Transmission Date: 20220721
  Serious: No
  Sender: FDA-Public Use
  Company Number: US-STRIDES ARCOLAB LIMITED-2022SP002028

PATIENT
  Age: 48 Year
  Sex: Female

DRUGS (1)
  1. TRAMADOL [Suspect]
     Active Substance: TRAMADOL
     Indication: Pain in extremity
     Dosage: 50 MILLIGRAM
     Route: 065

REACTIONS (2)
  - Myoclonus [Recovered/Resolved]
  - Muscle twitching [Recovered/Resolved]
